FAERS Safety Report 4676998-3 (Version None)
Quarter: 2005Q2

REPORT INFORMATION
  Report Type: 
  Country: None (occurrence: None)
  Receive Date: 20050526
  Receipt Date: 20050516
  Transmission Date: 20051028
  Serious: Yes (Disabling)
  Sender: FDA-Public Use
  Company Number: 2005066069

PATIENT
  Age: 53 Year
  Sex: Female
  Weight: 63 kg

DRUGS (1)
  1. EPIRUBICIN [Suspect]
     Indication: BLADDER NEOPLASM
     Dates: start: 19970918

REACTIONS (2)
  - CHEMICAL CYSTITIS [None]
  - DRUG INEFFECTIVE [None]
